FAERS Safety Report 11288478 (Version 1)
Quarter: 2015Q3

REPORT INFORMATION
  Report Type: Spontaneous
  Country: BR (occurrence: BR)
  Receive Date: 20150721
  Receipt Date: 20150721
  Transmission Date: 20151125
  Serious: Yes (Other)
  Sender: FDA-Public Use
  Company Number: BR-PFIZER INC-2015239155

PATIENT
  Age: 37 Year
  Sex: Female
  Weight: 73 kg

DRUGS (5)
  1. PRISTIQ EXTENDED RELEASE [Suspect]
     Active Substance: DESVENLAFAXINE SUCCINATE
     Indication: DEPRESSION
     Dosage: 100 MG, DAILY
     Dates: start: 2014
  2. LAMITOR [Concomitant]
     Active Substance: LAMOTRIGINE
     Dosage: 200 MG, UNK
  3. BUPROPION. [Concomitant]
     Active Substance: BUPROPION
     Dosage: 150 MG, UNK
  4. PRISTIQ EXTENDED RELEASE [Suspect]
     Active Substance: DESVENLAFAXINE SUCCINATE
     Indication: BIPOLAR DISORDER
  5. RIVOTRIL [Concomitant]
     Active Substance: CLONAZEPAM
     Dosage: 1 MG, UNK

REACTIONS (1)
  - Gastric disorder [Unknown]
